FAERS Safety Report 11760960 (Version 1)
Quarter: 2015Q4

REPORT INFORMATION
  Report Type: Spontaneous
  Country: CZ (occurrence: CZ)
  Receive Date: 20151120
  Receipt Date: 20151120
  Transmission Date: 20160304
  Serious: Yes (Life-Threatening, Hospitalization)
  Sender: FDA-Public Use
  Company Number: CZ-FRESENIUS KABI-FK201506018

PATIENT
  Age: 59 Year
  Sex: Female
  Weight: 118 kg

DRUGS (12)
  1. RANITIDINE [Concomitant]
     Active Substance: RANITIDINE\RANITIDINE HYDROCHLORIDE
  2. DITHIADEN [Concomitant]
     Active Substance: BISULEPIN
  3. DEXAMED [Concomitant]
  4. PACLITAXEL KABI [Concomitant]
     Active Substance: PACLITAXEL
  5. LOKREN [Concomitant]
     Active Substance: BETAXOLOL HYDROCHLORIDE
  6. LETROX [Concomitant]
  7. GRANISETRON [Concomitant]
     Active Substance: GRANISETRON
  8. CARBOPLATIN INJECTION 10MG/ML [Suspect]
     Active Substance: CARBOPLATIN
     Indication: VULVAL CANCER METASTATIC
     Route: 041
     Dates: start: 20151029, end: 20151029
  9. PRESTARIUM NEO [Concomitant]
     Active Substance: PERINDOPRIL ARGININE
  10. DITHIADEN [Concomitant]
     Active Substance: BISULEPIN
  11. CALTRATE [Concomitant]
     Active Substance: CALCIUM CARBONATE
  12. LOKREN [Concomitant]
     Active Substance: BETAXOLOL HYDROCHLORIDE

REACTIONS (5)
  - Defaecation urgency [Recovered/Resolved]
  - Hyperhidrosis [Recovered/Resolved]
  - Hypotension [Recovered/Resolved]
  - Nausea [Recovered/Resolved]
  - Asthenia [Recovered/Resolved]

NARRATIVE: CASE EVENT DATE: 20151029
